FAERS Safety Report 17108541 (Version 1)
Quarter: 2019Q4

REPORT INFORMATION
  Report Type: Spontaneous
  Country: US (occurrence: US)
  Receive Date: 20191203
  Receipt Date: 20191203
  Transmission Date: 20200122
  Serious: No
  Sender: FDA-Public Use
  Company Number: US-US WORLDMEDS, LLC-USW201910-001899

PATIENT
  Age: 71 Year
  Sex: Male

DRUGS (1)
  1. LUCEMYRA [Suspect]
     Active Substance: LOFEXIDINE
     Indication: PRODUCT USED FOR UNKNOWN INDICATION
     Dosage: 0.18 MG TAKE 3 TABLETS 4 TIMES A DAY ON DAYS 1-7, 2 TABLETS 4 TIMES A DAY ON DAY 8, AND 1 TABLET 4 T
     Dates: start: 20191003

REACTIONS (2)
  - Dry mouth [Unknown]
  - Fatigue [Unknown]

NARRATIVE: CASE EVENT DATE: 20191003
